FAERS Safety Report 22182024 (Version 1)
Quarter: 2023Q2

REPORT INFORMATION
  Report Type: Spontaneous
  Country: US (occurrence: None)
  Receive Date: 20230405
  Receipt Date: 20230405
  Transmission Date: 20230722
  Serious: Yes (Hospitalization)
  Sender: FDA-Public Use
  Company Number: None

PATIENT
  Sex: Male

DRUGS (3)
  1. TOLVAPTAN [Suspect]
     Active Substance: TOLVAPTAN
     Indication: Inappropriate antidiuretic hormone secretion
     Dosage: OTHER FREQUENCY : EVERY 24 HOURS;?
     Route: 048
  2. JANUVIA TAB [Concomitant]
  3. VORICONAZOLE TAB [Concomitant]

REACTIONS (1)
  - Hospitalisation [None]
